FAERS Safety Report 17001548 (Version 2)
Quarter: 2019Q4

REPORT INFORMATION
  Report Type: Report from Study
  Country: FR (occurrence: FR)
  Receive Date: 20191106
  Receipt Date: 20191108
  Transmission Date: 20200122
  Serious: Yes (Death, Other)
  Sender: FDA-Public Use
  Company Number: FR-JAZZ-2019-FR-015242

PATIENT

DRUGS (2)
  1. CHOLURSO [Concomitant]
     Active Substance: URSODIOL
     Indication: PRODUCT USED FOR UNKNOWN INDICATION
  2. DEFITELIO [Suspect]
     Active Substance: DEFIBROTIDE SODIUM
     Indication: VENOOCCLUSIVE LIVER DISEASE
     Dosage: 25 MG/KG/DAY
     Route: 065
     Dates: start: 20160807, end: 20160901

REACTIONS (2)
  - Chronic graft versus host disease [Unknown]
  - Death [Fatal]

NARRATIVE: CASE EVENT DATE: 20170202
